FAERS Safety Report 5224274-2 (Version None)
Quarter: 2007Q1

REPORT INFORMATION
  Report Type: 
  Country: None (occurrence: None)
  Receive Date: 20070130
  Receipt Date: 20070123
  Transmission Date: 20070707
  Serious: Yes (Hospitalization, Other)
  Sender: FDA-Public Use
  Company Number: US-ELI_LILLY_AND_COMPANY-US200701004402

PATIENT
  Age: 73 Year
  Sex: Female

DRUGS (10)
  1. HUMATROPE [Suspect]
     Dosage: UNK, UNKNOWN
     Dates: start: 20020101
  2. NASACORT [Concomitant]
     Dosage: UNK, UNKNOWN
  3. ALBUTEROL [Concomitant]
     Dosage: UNK, UNKNOWN
  4. ADVAIR DISKUS 100/50 [Concomitant]
     Dosage: UNK, UNKNOWN
  5. PRINIVIL [Concomitant]
     Dosage: UNK, UNKNOWN
  6. TRENTAL [Concomitant]
     Dosage: UNK, UNKNOWN
  7. AGGRENOX [Concomitant]
     Dosage: UNK, UNKNOWN
  8. CARDIZEM [Concomitant]
     Dosage: UNK, UNKNOWN
  9. LAMICTAL [Concomitant]
     Dosage: UNK, UNKNOWN
  10. GENTAMICIN [Concomitant]
     Dosage: UNK, UNKNOWN

REACTIONS (3)
  - BRONCHITIS [None]
  - CARDIAC DISORDER [None]
  - CEREBROVASCULAR ACCIDENT [None]
